FAERS Safety Report 9457736 (Version 1)
Quarter: 2013Q3

REPORT INFORMATION
  Report Type: Spontaneous
  Country: US (occurrence: None)
  Receive Date: 20130812
  Receipt Date: 20130812
  Transmission Date: 20140515
  Serious: Yes (Other)
  Sender: FDA-Public Use
  Company Number: None

PATIENT
  Age: 22 Day
  Sex: Female
  Weight: 136.08 kg

DRUGS (1)
  1. CIPROFLOXACIN [Suspect]
     Indication: GASTROENTERITIS
     Route: 048

REACTIONS (9)
  - Hypoaesthesia [None]
  - Pain in extremity [None]
  - Pain in extremity [None]
  - Pain in extremity [None]
  - Pain in extremity [None]
  - Headache [None]
  - Palpitations [None]
  - Visual impairment [None]
  - Deafness [None]
